FAERS Safety Report 9859255 (Version 2)
Quarter: 2014Q4

REPORT INFORMATION
  Report Type: Spontaneous
  Country: US (occurrence: None)
  Receive Date: 20140129
  Receipt Date: 20141107
  Transmission Date: 20150529
  Serious: Yes (Other)
  Sender: FDA-Public Use
  Company Number: 2014-US-000634

PATIENT
  Age: 46 Year
  Sex: Female
  Weight: 58.8 kg

DRUGS (5)
  1. XYREM [Suspect]
     Active Substance: SODIUM OXYBATE
     Indication: NARCOLEPSY
     Route: 048
     Dates: start: 201003, end: 2010
  2. PROVIGIL [Concomitant]
     Active Substance: MODAFINIL
     Indication: NARCOLEPSY
     Route: 048
  3. CYMBALTA [Concomitant]
     Active Substance: DULOXETINE HYDROCHLORIDE
  4. XYREM [Suspect]
     Active Substance: SODIUM OXYBATE
     Indication: INSOMNIA
     Route: 048
     Dates: start: 201003, end: 2010
  5. VYVANSE [Concomitant]
     Active Substance: LISDEXAMFETAMINE DIMESYLATE

REACTIONS (11)
  - Pain [None]
  - Productive cough [None]
  - Palpitations [None]
  - Spinal pain [None]
  - Road traffic accident [None]
  - Insomnia [None]
  - Sciatica [None]
  - Musculoskeletal pain [None]
  - Back pain [None]
  - Muscle spasms [None]
  - Spinal osteoarthritis [None]

NARRATIVE: CASE EVENT DATE: 20140104
